FAERS Safety Report 25245427 (Version 2)
Quarter: 2025Q2

REPORT INFORMATION
  Report Type: Report from Study
  Country: US (occurrence: US)
  Receive Date: 20250428
  Receipt Date: 20250510
  Transmission Date: 20250717
  Serious: Yes (Other)
  Sender: JOHNSON AND JOHNSON
  Company Number: US-JNJFOC-20250429947

PATIENT
  Age: 38 Year
  Sex: Female

DRUGS (8)
  1. SPRAVATO [Suspect]
     Active Substance: ESKETAMINE
     Indication: Depression
     Route: 045
     Dates: start: 20250217, end: 20250219
  2. SPRAVATO [Suspect]
     Active Substance: ESKETAMINE
     Route: 045
     Dates: start: 20250226, end: 20250331
  3. SPRAVATO [Suspect]
     Active Substance: ESKETAMINE
     Route: 045
     Dates: start: 20250421, end: 20250421
  4. CLONAZEPAM [Concomitant]
     Active Substance: CLONAZEPAM
     Indication: Product used for unknown indication
  5. TRAMADOL [Concomitant]
     Active Substance: TRAMADOL
     Indication: Product used for unknown indication
  6. PRAZOSIN [Concomitant]
     Active Substance: PRAZOSIN
     Indication: Product used for unknown indication
  7. HYDROXYZINE [Concomitant]
     Active Substance: HYDROXYZINE HYDROCHLORIDE
     Indication: Product used for unknown indication
  8. GUANFACINE [Concomitant]
     Active Substance: GUANFACINE
     Indication: Product used for unknown indication

REACTIONS (1)
  - Dissociation [Recovered/Resolved]

NARRATIVE: CASE EVENT DATE: 20250421
